FAERS Safety Report 23049542 (Version 1)
Quarter: 2023Q4

REPORT INFORMATION
  Report Type: Spontaneous
  Country: US (occurrence: None)
  Receive Date: 20231007
  Receipt Date: 20231007
  Transmission Date: 20240110
  Serious: Yes (Hospitalization)
  Sender: FDA-Public Use
  Company Number: None

PATIENT
  Sex: Male
  Weight: 70.58 kg

DRUGS (1)
  1. CISPLATIN [Suspect]
     Active Substance: CISPLATIN

REACTIONS (6)
  - Vomiting [None]
  - Abdominal pain [None]
  - Nausea [None]
  - Productive cough [None]
  - Dysphagia [None]
  - Hypophagia [None]

NARRATIVE: CASE EVENT DATE: 20231003
